FAERS Safety Report 8168078-X (Version None)
Quarter: 2012Q1

REPORT INFORMATION
  Report Type: 
  Country: None (occurrence: None)
  Receive Date: 20120227
  Receipt Date: 20120216
  Transmission Date: 20120608
  Serious: Yes (Other)
  Sender: FDA-Public Use
  Company Number: PHHY2012JP015770

PATIENT
  Age: 90 Year
  Sex: Female

DRUGS (2)
  1. RIVASTIGMINE [Suspect]
     Dosage: 18 MG, ONCE A DAY
     Route: 062
     Dates: end: 20120120
  2. RIVASTIGMINE [Suspect]
     Indication: DEMENTIA ALZHEIMER'S TYPE
     Dosage: 13.5 MG, ONCE A DAY
     Route: 062
     Dates: start: 20110101

REACTIONS (1)
  - LOSS OF CONSCIOUSNESS [None]
